FAERS Safety Report 5985462-0 (Version None)
Quarter: 2008Q4

REPORT INFORMATION
  Report Type: 
  Country: None (occurrence: None)
  Receive Date: 20081208
  Receipt Date: 20080320
  Transmission Date: 20090506
  Serious: No
  Sender: FDA-Public Use
  Company Number: US-AMGEN-KDL270803

PATIENT
  Sex: Female

DRUGS (2)
  1. ENBREL [Suspect]
     Indication: PSORIATIC ARTHROPATHY
     Route: 058
     Dates: start: 20080205
  2. ENBREL [Suspect]
     Indication: PSORIASIS

REACTIONS (3)
  - CONTUSION [None]
  - DIZZINESS [None]
  - PARAESTHESIA [None]
